FAERS Safety Report 16417009 (Version 1)
Quarter: 2019Q2

REPORT INFORMATION
  Report Type: Spontaneous
  Country: US (occurrence: US)
  Receive Date: 20190611
  Receipt Date: 20190611
  Transmission Date: 20190711
  Serious: Yes (Other)
  Sender: FDA-Public Use
  Company Number: US-GILEAD-2019-0412547

PATIENT
  Sex: Female

DRUGS (2)
  1. LETAIRIS [Suspect]
     Active Substance: AMBRISENTAN
     Indication: PULMONARY ARTERIAL HYPERTENSION
     Dosage: 5 MG, QD
     Route: 065
  2. LETAIRIS [Suspect]
     Active Substance: AMBRISENTAN
     Indication: CONNECTIVE TISSUE DISORDER

REACTIONS (7)
  - Oesophageal stenosis [Unknown]
  - Obesity [Unknown]
  - Diabetes mellitus [Unknown]
  - Sjogren^s syndrome [Unknown]
  - Pulmonary hypertension [Unknown]
  - Scleroderma [Unknown]
  - Rales [Unknown]

NARRATIVE: CASE EVENT DATE: 201903
